FAERS Safety Report 19511817 (Version 2)
Quarter: 2021Q3

REPORT INFORMATION
  Report Type: Report from Study
  Country: CO (occurrence: CO)
  Receive Date: 20210709
  Receipt Date: 20210723
  Transmission Date: 20211014
  Serious: Yes (Other)
  Sender: FDA-Public Use
  Company Number: NVSC2021CO090383

PATIENT
  Sex: Female
  Weight: 67 kg

DRUGS (3)
  1. XOLAIR [Suspect]
     Active Substance: OMALIZUMAB
     Dosage: 1200 MG, QMO (2 YEARS AGO AND STOPPED 3 MONTHS AGO)
     Route: 058
  2. MONTELUKAST [Suspect]
     Active Substance: MONTELUKAST SODIUM
     Indication: ASTHMA
     Dosage: QD (STARTED 2 YEARS AGO)
     Route: 048
  3. XOLAIR [Suspect]
     Active Substance: OMALIZUMAB
     Indication: ASTHMA
     Dosage: 1200 MG, QMO (OR 3 YEARS AGO)
     Route: 058
     Dates: end: 202101

REACTIONS (13)
  - Asphyxia [Unknown]
  - Pain [Unknown]
  - Hypersensitivity [Unknown]
  - Incorrect dose administered [Unknown]
  - Asthenia [Not Recovered/Not Resolved]
  - Abdominal discomfort [Unknown]
  - Dyspnoea [Unknown]
  - Asthma [Unknown]
  - Malaise [Unknown]
  - Gastritis [Unknown]
  - Abdominal pain upper [Unknown]
  - Asthmatic crisis [Unknown]
  - Alopecia [Unknown]
